FAERS Safety Report 20092687 (Version 4)
Quarter: 2022Q1

REPORT INFORMATION
  Report Type: Spontaneous
  Country: US (occurrence: US)
  Receive Date: 20211120
  Receipt Date: 20220225
  Transmission Date: 20220423
  Serious: No
  Sender: FDA-Public Use
  Company Number: US-SA-SAC20211117001385

PATIENT
  Age: 26 Year
  Sex: Male

DRUGS (2)
  1. FABRAZYME [Suspect]
     Active Substance: AGALSIDASE BETA
     Indication: Fabry^s disease
     Dosage: 70 MG IN 250 ML NORMAL SALINE, QOW
     Route: 042
     Dates: start: 202103, end: 20211123
  2. DUPIXENT [Concomitant]
     Active Substance: DUPILUMAB
     Dosage: 300 MG, QOW
     Route: 058

REACTIONS (7)
  - Constipation [Unknown]
  - Anxiety [Unknown]
  - Palpitations [Unknown]
  - Burning sensation [Unknown]
  - Temperature intolerance [Unknown]
  - Muscle spasms [Unknown]
  - Intentional dose omission [Unknown]

NARRATIVE: CASE EVENT DATE: 20210101
